FAERS Safety Report 10853712 (Version 1)
Quarter: 2015Q1

REPORT INFORMATION
  Report Type: Spontaneous
  Country: US (occurrence: US)
  Receive Date: 20150223
  Receipt Date: 20150223
  Transmission Date: 20150721
  Serious: Yes (Other)
  Sender: FDA-Public Use
  Company Number: US-AUROBINDO-AUR-APL-2015-01457

PATIENT
  Sex: Male

DRUGS (2)
  1. OLANZAPINE. [Suspect]
     Active Substance: OLANZAPINE
     Dosage: 20 MG, TWO TIMES A DAY
     Route: 048
  2. OLANZAPINE. [Suspect]
     Active Substance: OLANZAPINE
     Indication: BIPOLAR I DISORDER
     Dosage: 40 MG, TWO TIMES A DAY
     Route: 048

REACTIONS (8)
  - Delusion [Recovered/Resolved]
  - Feeling guilty [Recovered/Resolved]
  - Suicidal ideation [Recovered/Resolved]
  - Mania [Recovered/Resolved]
  - Erectile dysfunction [Recovered/Resolved]
  - Post-traumatic stress disorder [Recovered/Resolved]
  - Depression [Recovered/Resolved]
  - Anxiety [Recovered/Resolved]
